FAERS Safety Report 8449292 (Version 3)
Quarter: 2013Q1

REPORT INFORMATION
  Report Type: Spontaneous
  Country: BR (occurrence: BR)
  Receive Date: 20120308
  Receipt Date: 20130312
  Transmission Date: 20140127
  Serious: Yes (Life-Threatening, Other)
  Sender: FDA-Public Use
  Company Number: PHHY2012BR019674

PATIENT
  Sex: Female
  Weight: 68 kg

DRUGS (6)
  1. FORASEQ [Suspect]
     Indication: EMPHYSEMA
     Dosage: 2 DF, 1 INHALATION IN THE MORNING AND 1 INHALATION AT 7:00 P.M
  2. OMEPRAZOLE [Concomitant]
     Indication: GASTRIC DISORDER
     Dosage: 2 DF, ONE TABLET IN THE MORNING AND 1 TABLET AT NIGHT
     Route: 048
  3. SLOW-K [Concomitant]
  4. SIMVASTATIN [Concomitant]
     Dosage: 1 DF, UNK
     Route: 048
  5. VERAPAMIL [Concomitant]
  6. AAS [Concomitant]

REACTIONS (10)
  - Asphyxia [Unknown]
  - Emphysema [Unknown]
  - Cyanosis [Recovered/Resolved]
  - Dyspnoea [Recovered/Resolved]
  - Syncope [Recovered/Resolved]
  - Dyspnoea exertional [Recovered/Resolved]
  - Cholelithiasis [Recovered/Resolved]
  - Pain [Recovered/Resolved]
  - Weight decreased [Not Recovered/Not Resolved]
  - Fatigue [Not Recovered/Not Resolved]
